FAERS Safety Report 8030641-4 (Version None)
Quarter: 2012Q1

REPORT INFORMATION
  Report Type: 
  Country: None (occurrence: None)
  Receive Date: 20120109
  Receipt Date: 20111213
  Transmission Date: 20120608
  Serious: Yes (Hospitalization)
  Sender: FDA-Public Use
  Company Number: DK-ROCHE-1027213

PATIENT
  Sex: Male

DRUGS (9)
  1. ALDESLEUKIN [Suspect]
     Indication: METASTATIC RENAL CELL CARCINOMA
     Dosage: 5 IE/DAY
     Route: 042
     Dates: end: 20111129
  2. AVASTIN [Suspect]
     Route: 042
     Dates: start: 20111227, end: 20111227
  3. INTERFERON ALFA [Suspect]
     Indication: METASTATIC RENAL CELL CARCINOMA
     Route: 058
     Dates: start: 20111122
  4. INTERFERON ALFA [Suspect]
     Dosage: 3 IE/DAY
     Route: 058
     Dates: start: 20111227, end: 20111231
  5. PANTOPRAZOLE [Concomitant]
     Route: 048
     Dates: start: 20111204
  6. EMPERAL [Concomitant]
     Route: 048
     Dates: start: 20111129
  7. FRAGMIN [Concomitant]
     Route: 058
     Dates: start: 20111012
  8. ALDESLEUKIN [Suspect]
     Dosage: 5 IE PER DAY
     Route: 058
     Dates: start: 20111227, end: 20111231
  9. AVASTIN [Suspect]
     Indication: METASTATIC RENAL CELL CARCINOMA
     Route: 042
     Dates: start: 20111129

REACTIONS (3)
  - DEHYDRATION [None]
  - NAUSEA [None]
  - VOMITING [None]
